FAERS Safety Report 16126222 (Version 1)
Quarter: 2019Q1

REPORT INFORMATION
  Report Type: Spontaneous
  Country: US (occurrence: US)
  Receive Date: 20190222
  Receipt Date: 20190222
  Transmission Date: 20190418
  Serious: Yes (Hospitalization)
  Sender: FDA-Public Use
  Company Number: None

PATIENT
  Age: 48 Year
  Sex: Female

DRUGS (18)
  1. DIFICID 200MG [Concomitant]
  2. VANCOMYCIN 125MG [Concomitant]
  3. FUROSEMIDE 40MG [Concomitant]
     Active Substance: FUROSEMIDE
  4. NOVOLIN N [Concomitant]
     Active Substance: INSULIN HUMAN
  5. ATOVAQUONE. [Concomitant]
     Active Substance: ATOVAQUONE
  6. VORICONAZOLE 200MG [Concomitant]
     Active Substance: VORICONAZOLE
  7. CO-ISRIMEIN?? [Concomitant]
  8. SERTRALINE [Concomitant]
     Active Substance: SERTRALINE HYDROCHLORIDE
  9. SEVELAMER 800MG [Concomitant]
  10. NOVOLOG [Concomitant]
     Active Substance: INSULIN ASPART
  11. METOPROL/SUCC 25MG [Concomitant]
  12. FERROUS GLUC TABS 324MG [Concomitant]
  13. VALACYCLOVIR [Concomitant]
     Active Substance: VALACYCLOVIR HYDROCHLORIDE
  14. TOBRAMYCIN 300MG [Suspect]
     Active Substance: TOBRAMYCIN
     Dates: start: 20181231
  15. GABEPENTIN 100MG [Concomitant]
  16. CALCITRATE TAB [Concomitant]
  17. MYCOPHENOLATE 500MG [Concomitant]
     Active Substance: MYCOPHENOLIC ACID
  18. PROXXXX 2.5MG [Concomitant]

REACTIONS (1)
  - Hospitalisation [None]
